FAERS Safety Report 8186758-7 (Version None)
Quarter: 2012Q1

REPORT INFORMATION
  Report Type: 
  Country: None (occurrence: None)
  Receive Date: 20120306
  Receipt Date: 20120306
  Transmission Date: 20120608
  Serious: No
  Sender: FDA-Public Use
  Company Number: None

PATIENT
  Sex: Female
  Weight: 72.574 kg

DRUGS (1)
  1. LATANOPROST [Suspect]
     Indication: INTRAOCULAR PRESSURE INCREASED
     Dosage: 1 DROP
     Route: 047
     Dates: start: 20110801, end: 20120224

REACTIONS (5)
  - EYE PAIN [None]
  - SINUS HEADACHE [None]
  - BALANCE DISORDER [None]
  - ABDOMINAL DISCOMFORT [None]
  - EYE IRRITATION [None]
